FAERS Safety Report 20047283 (Version 1)
Quarter: 2021Q4

REPORT INFORMATION
  Report Type: Spontaneous
  Country: US (occurrence: US)
  Receive Date: 20211109
  Receipt Date: 20211109
  Transmission Date: 20220303
  Serious: Yes (Hospitalization, Other)
  Sender: FDA-Public Use
  Company Number: US-SUN PHARMACEUTICAL INDUSTRIES LTD-2021R1-316764

PATIENT
  Age: 77 Year
  Sex: Male

DRUGS (6)
  1. PREDNISONE [Suspect]
     Active Substance: PREDNISONE
     Indication: Microscopic polyangiitis
     Dosage: 40 MILLIGRAM, DAILY
     Route: 065
  2. PREDNISONE [Suspect]
     Active Substance: PREDNISONE
     Dosage: 45 MILLIGRAM, DAILY
     Route: 065
  3. PREDNISONE [Suspect]
     Active Substance: PREDNISONE
     Dosage: 35 MILLIGRAM, DAILY
     Route: 065
  4. PREDNISONE [Suspect]
     Active Substance: PREDNISONE
     Dosage: 10 MILLIGRAM, DAILY
     Route: 065
  5. CYCLOPHOSPHAMIDE [Suspect]
     Active Substance: CYCLOPHOSPHAMIDE
     Indication: Microscopic polyangiitis
     Dosage: UNK (400 MG/M2)
     Route: 042
  6. HYDRALAZINE [Concomitant]
     Active Substance: HYDRALAZINE HYDROCHLORIDE
     Indication: Hypertension
     Dosage: UNK
     Route: 065

REACTIONS (4)
  - Kaposi^s sarcoma [Recovering/Resolving]
  - Urosepsis [Recovered/Resolved]
  - Clostridium difficile colitis [Recovered/Resolved]
  - Escherichia bacteraemia [Recovered/Resolved]
